FAERS Safety Report 17763629 (Version 1)
Quarter: 2020Q2

REPORT INFORMATION
  Report Type: Spontaneous
  Country: NL (occurrence: NL)
  Receive Date: 20200509
  Receipt Date: 20200509
  Transmission Date: 20200714
  Serious: Yes (Other)
  Sender: FDA-Public Use
  Company Number: NL-TEVA-2020-NL-1232793

PATIENT
  Age: 88 Year
  Sex: Male
  Weight: 79 kg

DRUGS (13)
  1. COLECALCIFEROL [Concomitant]
     Active Substance: CHOLECALCIFEROL
     Dosage: THERAPY START DATE: ASKED BUT UNKNOWN, THERAPY END DATE : ASKED BUT UNKNOWN, 800 IU
  2. GLICLAZIDE [Concomitant]
     Active Substance: GLICLAZIDE
     Dosage: THERAPY START DATE: ASKED BUT UNKNOWN, THERAPY END DATE : ASKED BUT UNKNOWN, 80 MG
  3. CLOPIDOGREL [Concomitant]
     Active Substance: CLOPIDOGREL BISULFATE
     Dosage: THERAPY START DATE: ASKED BUT UNKNOWN, THERAPY END DATE : ASKED BUT UNKNOWN, 75 MG
  4. METOPROLOL. [Concomitant]
     Active Substance: METOPROLOL
     Dosage: THERAPY START DATE: ASKED BUT UNKNOWN, THERAPY END DATE : ASKED BUT UNKNOWN, 25 MG
  5. TIOTROPIUM [Concomitant]
     Active Substance: TIOTROPIUM
     Dosage: THERAPY START DATE: ASKED BUT UNKNOWN, THERAPY END DATE : ASKED BUT UNKNOWN? 2.5 MICROGRAM  / DOSE (
  6. VALSARTAN. [Suspect]
     Active Substance: VALSARTAN
     Indication: HYPERTENSION
     Dosage: 40 MILLIGRAM DAILY;
     Route: 065
     Dates: start: 201803, end: 20200409
  7. DURATEARS-OOGDRUPPELS (DEXTRAN 70/HYPROMELLOSE) [Concomitant]
     Dosage: 1/3 MG / ML (MILLIGRAMS PER MILLILITER), THERAPY START DATE: ASKED BUT UNKNOWN, THERAPY END DATE : A
  8. NITROLINGUAL (NITROGLYCERINE) [Concomitant]
     Dosage: 0.4 MG / DOSE (MILLIGRAMS PER DOSE), THERAPY START DATE: ASKED BUT UNKNOWN, THERAPY END DATE : ASKED
  9. FUROSEMIDE. [Concomitant]
     Active Substance: FUROSEMIDE
     Dosage: THERAPY START DATE: ASKED BUT UNKNOWN, THERAPY END DATE : ASKED BUT UNKNOWN, 20 MG
  10. ISOSORBIDEMONONITRAAT [Concomitant]
     Dosage: THERAPY START DATE: ASKED BUT UNKNOWN, THERAPY END DATE : ASKED BUT UNKNOWN?50 MG (MILLIGRAMS
  11. SALMETEROL [Concomitant]
     Active Substance: SALMETEROL
     Dosage: THERAPY START DATE: ASKED BUT UNKNOWN, THERAPY END DATE : ASKED BUT UNKNOWN
  12. METFORMINE [Concomitant]
     Active Substance: METFORMIN HYDROCHLORIDE
     Dosage: 1000 MG (MILLIGRAM), THERAPY START DATE: ASKED BUT UNKNOWN, THERAPY END DATE : ASKED BUT UNKNOWN, 10
  13. GABAPENTINE [Concomitant]
     Active Substance: GABAPENTIN
     Dosage: 100 MG (MILLIGRAM), THERAPY START DATE: ASKED BUT UNKNOWN, THERAPY END DATE : ASKED BUT UNKNOWN

REACTIONS (2)
  - Angioedema [Recovered/Resolved]
  - Swelling face [Recovered/Resolved]

NARRATIVE: CASE EVENT DATE: 20200409
